FAERS Safety Report 8521647-7 (Version None)
Quarter: 2012Q3

REPORT INFORMATION
  Report Type: 
  Country: None (occurrence: None)
  Receive Date: 20120719
  Receipt Date: 20120717
  Transmission Date: 20120928
  Serious: Yes (Other)
  Sender: FDA-Public Use
  Company Number: PHEH2012US014025

PATIENT
  Sex: Male

DRUGS (2)
  1. ATENINOL [Concomitant]
  2. DIOVAN [Suspect]
     Indication: HYPERTENSION
     Dosage: 160 MG, QD

REACTIONS (3)
  - FALL [None]
  - ALLERGY TO METALS [None]
  - MUSCLE INJURY [None]
